FAERS Safety Report 20096699 (Version 1)
Quarter: 2021Q4

REPORT INFORMATION
  Report Type: Spontaneous
  Country: DE (occurrence: None)
  Receive Date: 20211122
  Receipt Date: 20211122
  Transmission Date: 20220304
  Serious: Yes (Life-Threatening, Hospitalization, Other)
  Sender: FDA-Public Use
  Company Number: 2021A806549

PATIENT
  Sex: Female
  Weight: 100 kg

DRUGS (4)
  1. DAPAGLIFLOZIN [Suspect]
     Active Substance: DAPAGLIFLOZIN
     Indication: Cardiac failure
     Route: 048
     Dates: start: 20211014
  2. DAPAGLIFLOZIN [Suspect]
     Active Substance: DAPAGLIFLOZIN
     Indication: Type 2 diabetes mellitus
     Route: 048
     Dates: start: 20211014
  3. SITAGLIPTIN/ METFORMIN [Concomitant]
     Indication: Cardiac failure
     Route: 048
     Dates: start: 20211014
  4. SITAGLIPTIN/ METFORMIN [Concomitant]
     Indication: Type 2 diabetes mellitus
     Route: 048
     Dates: start: 20211014

REACTIONS (1)
  - Ketoacidosis [Recovered/Resolved]

NARRATIVE: CASE EVENT DATE: 20211015
